FAERS Safety Report 10645567 (Version 2)
Quarter: 2014Q4

REPORT INFORMATION
  Report Type: Spontaneous
  Country: US (occurrence: US)
  Receive Date: 20141211
  Receipt Date: 20141211
  Transmission Date: 20150529
  Serious: No
  Sender: FDA-Public Use
  Company Number: US-BAUSCH-SYM-2013-07703

PATIENT
  Age: 64 Year
  Sex: Male

DRUGS (2)
  1. XENAZINE [Suspect]
     Active Substance: TETRABENAZINE
     Indication: HUNTINGTON^S DISEASE
     Route: 048
     Dates: end: 20130726
  2. XENAZINE [Suspect]
     Active Substance: TETRABENAZINE
     Route: 048
     Dates: start: 20140710

REACTIONS (4)
  - Drug administration error [Not Recovered/Not Resolved]
  - Confusional state [Unknown]
  - Stitch abscess [Unknown]
  - Face injury [Unknown]

NARRATIVE: CASE EVENT DATE: 2014
